FAERS Safety Report 8914168 (Version 2)
Quarter: 2012Q4

REPORT INFORMATION
  Report Type: 
  Country: US (occurrence: US)
  Receive Date: 20121119
  Receipt Date: 20121130
  Transmission Date: 20130627
  Serious: Yes (Other)
  Sender: FDA-Public Use
  Company Number: US-JNJFOC-A122464

PATIENT
  Sex: Female
  Weight: 56.7 kg

DRUGS (7)
  1. ZYRTEC [Suspect]
     Route: 048
  2. ZYRTEC [Suspect]
     Indication: MULTIPLE ALLERGIES
     Route: 048
     Dates: start: 1999, end: 20010928
  3. DIGOXIN [Concomitant]
     Route: 048
  4. ESTRADIOL [Concomitant]
     Route: 048
  5. MEDROXYPROGESTERONE [Concomitant]
     Route: 048
  6. LATANOPROST [Concomitant]
     Route: 047
  7. CHONDROITIN/GLUCOSAMINE [Concomitant]
     Route: 065

REACTIONS (8)
  - Oculogyric crisis [Recovered/Resolved]
  - Intraocular pressure increased [Recovered/Resolved]
  - Angioedema [Recovered/Resolved]
  - Rhinitis allergic [Recovered/Resolved]
  - Vision blurred [Recovered/Resolved]
  - Swelling face [Not Recovered/Not Resolved]
  - Injury [Not Recovered/Not Resolved]
  - Visual acuity reduced [Not Recovered/Not Resolved]
